FAERS Safety Report 22331962 (Version 1)
Quarter: 2023Q2

REPORT INFORMATION
  Report Type: Spontaneous
  Country: US (occurrence: US)
  Receive Date: 20230517
  Receipt Date: 20230517
  Transmission Date: 20230722
  Serious: Yes (Other)
  Sender: FDA-Public Use
  Company Number: US-BAYER-2023A065885

PATIENT
  Age: 55 Year

DRUGS (2)
  1. KERENDIA [Suspect]
     Active Substance: FINERENONE
     Dosage: 20 MG, UNK
  2. KERENDIA [Suspect]
     Active Substance: FINERENONE
     Dosage: 10 MG, UNK

REACTIONS (2)
  - Hyperkalaemia [None]
  - Product monitoring error [None]

NARRATIVE: CASE EVENT DATE: 20230509
